FAERS Safety Report 20538099 (Version 1)
Quarter: 2022Q1

REPORT INFORMATION
  Report Type: Spontaneous
  Country: US (occurrence: None)
  Receive Date: 20220301
  Receipt Date: 20220301
  Transmission Date: 20220424
  Serious: Yes (unspecified)
  Sender: FDA-Public Use
  Company Number: None

PATIENT
  Age: 52 Year
  Sex: Female
  Weight: 47.2 kg

DRUGS (7)
  1. RITUXIMAB-ABBS [Suspect]
     Active Substance: RITUXIMAB-ABBS
     Indication: Follicular lymphoma
     Dosage: OTHER FREQUENCY : EVERY 28 DAYS;?
     Route: 042
     Dates: start: 20220222
  2. PALONOSETRON [Concomitant]
     Active Substance: PALONOSETRON
     Dates: start: 20220222
  3. DEXAMETHASONE [Concomitant]
     Active Substance: DEXAMETHASONE
     Dates: start: 20220222
  4. ACETAMINOPHEN [Concomitant]
     Active Substance: ACETAMINOPHEN
     Dates: start: 20220222
  5. DIPHENHYDRAMINE [Concomitant]
     Active Substance: DIPHENHYDRAMINE
     Dates: start: 20220222
  6. FAMOTIDINE [Concomitant]
     Active Substance: FAMOTIDINE
     Dates: start: 20220222
  7. BENDAMUSTINE [Concomitant]
     Active Substance: BENDAMUSTINE
     Dates: start: 20220222

REACTIONS (5)
  - Throat irritation [None]
  - Pruritus [None]
  - Pruritus [None]
  - Therapy interrupted [None]
  - Infusion related reaction [None]

NARRATIVE: CASE EVENT DATE: 20220222
